FAERS Safety Report 10237722 (Version 1)
Quarter: 2014Q2

REPORT INFORMATION
  Report Type: Spontaneous
  Country: CA (occurrence: CA)
  Receive Date: 20140616
  Receipt Date: 20140616
  Transmission Date: 20141212
  Serious: Yes (Hospitalization)
  Sender: FDA-Public Use
  Company Number: CA-BEH-2014042023

PATIENT
  Age: 92 Year
  Sex: Female

DRUGS (2)
  1. PRIVIGEN [Suspect]
     Dates: start: 20140105, end: 20140105
  2. ANESTHESIA [Concomitant]

REACTIONS (8)
  - Hypersensitivity [Unknown]
  - Fluid overload [Unknown]
  - Erythema [Unknown]
  - Tachypnoea [Unknown]
  - Bronchospasm [Unknown]
  - Cyanosis [Unknown]
  - Face oedema [Unknown]
  - Hypertension [Unknown]
